FAERS Safety Report 7555037-0 (Version None)
Quarter: 2011Q2

REPORT INFORMATION
  Report Type: 
  Country: None (occurrence: None)
  Receive Date: 20110617
  Receipt Date: 20110614
  Transmission Date: 20111010
  Serious: Yes (Disabling, Other)
  Sender: FDA-Public Use
  Company Number: US-PFIZER INC-2011103203

PATIENT
  Sex: Female
  Weight: 90.703 kg

DRUGS (13)
  1. SOMA [Concomitant]
     Indication: MUSCLE SPASMS
  2. LYRICA [Concomitant]
     Indication: FIBROMYALGIA
     Dosage: 150 MG, 1X/DAY
     Route: 048
  3. EFFEXOR [Suspect]
     Indication: BIPOLAR DISORDER
     Dosage: 300 MG, 1X/DAY
     Route: 048
  4. SOMA [Concomitant]
     Indication: FIBROMYALGIA
     Dosage: 225 MG, UNK
     Route: 048
  5. GEODON [Suspect]
     Indication: BIPOLAR DISORDER
  6. EFFEXOR [Suspect]
     Indication: SUICIDAL IDEATION
  7. NORCO [Concomitant]
     Indication: INTERVERTEBRAL DISC PROTRUSION
  8. EFFEXOR [Suspect]
     Indication: DEPRESSION
  9. AMITRIPTYLINE HCL [Suspect]
     Dosage: UNK
  10. NORCO [Concomitant]
     Indication: PAIN
     Dosage: 310 MG, UNK
     Route: 048
  11. LAMICTAL [Concomitant]
     Indication: INSOMNIA
     Dosage: UNK
     Route: 048
  12. GEODON [Suspect]
     Indication: INSOMNIA
     Dosage: 60 MG, 1X/DAY
     Route: 048
     Dates: start: 20110506
  13. TRAZODONE HCL [Suspect]
     Indication: SLEEP DISORDER
     Dosage: 300 MG, 1X/DAY
     Route: 048

REACTIONS (7)
  - RENAL FAILURE ACUTE [None]
  - HEADACHE [None]
  - FEELING ABNORMAL [None]
  - SUICIDAL IDEATION [None]
  - INSOMNIA [None]
  - GAIT DISTURBANCE [None]
  - WEIGHT INCREASED [None]
